FAERS Safety Report 23833496 (Version 2)
Quarter: 2024Q2

REPORT INFORMATION
  Report Type: Report from Study
  Country: US (occurrence: US)
  Receive Date: 20240508
  Receipt Date: 20240510
  Transmission Date: 20240716
  Serious: Yes (Death)
  Sender: FDA-Public Use
  Company Number: US-ABBVIE-5749937

PATIENT
  Age: 74 Year
  Sex: Male

DRUGS (13)
  1. VENCLEXTA [Suspect]
     Active Substance: VENETOCLAX
     Indication: Chronic lymphocytic leukaemia
     Dosage: TAKE 2 TABLET(S) BY MOUTH EVERY DAY WITH WATER AND A MEAL, AT APPROXIMATELY?THE SAME TIME EACH DA...
     Route: 048
  2. VENCLEXTA [Suspect]
     Active Substance: VENETOCLAX
     Indication: Chronic lymphocytic leukaemia
     Dosage: ONGOING NO LAST SHIPMENT OF PRODUCT WENT OUT ON 09-SEP-2023.?TAKE 2 TABLET(S) BY MOUTH EVERY DAY ...
     Route: 048
     Dates: start: 20230614
  3. VENCLEXTA [Suspect]
     Active Substance: VENETOCLAX
     Indication: Chronic lymphocytic leukaemia
     Dosage: THEN, 50MG(1X50MG TAB) DAILY BY MOUTH WEEK 2?FORM STRENGTH WAS 50 MILLIGRAM
     Route: 048
  4. VENCLEXTA [Suspect]
     Active Substance: VENETOCLAX
     Indication: Chronic lymphocytic leukaemia
     Dosage: FORM STRENGTH WAS 400 MILLIGRAM
     Route: 048
  5. VENCLEXTA [Suspect]
     Active Substance: VENETOCLAX
     Indication: Chronic lymphocytic leukaemia
     Dosage: TAKE 20MG(2X10MG TABS) BY MOUTH EVERY DAY ON WEEK 1?FORM STRENGTH WAS 10 MILLIGRAM
     Route: 048
  6. VENCLEXTA [Suspect]
     Active Substance: VENETOCLAX
     Indication: Chronic lymphocytic leukaemia
     Dosage: THEN, 200MG(2X100MG TABS) DAILY WEEK 4?FORM STRENGTH WAS 100 MILLIGRAM
     Route: 048
  7. VENCLEXTA [Suspect]
     Active Substance: VENETOCLAX
     Indication: Chronic lymphocytic leukaemia
     Dosage: 100MG(1X100MG TAB) BY MOUTH DAILY WEEK 3?FORM STRENGTH WAS 100 MILLIGRAM
     Route: 048
  8. RUXIENCE [Concomitant]
     Active Substance: RITUXIMAB-PVVR
     Indication: Product used for unknown indication
     Route: 042
  9. TADALAFIL [Concomitant]
     Active Substance: TADALAFIL
     Indication: Product used for unknown indication
     Dosage: 20 MG TABLET?FORM STRENGTH: 20 MG
     Route: 048
  10. ALLOPURINOL [Concomitant]
     Active Substance: ALLOPURINOL
     Indication: Product used for unknown indication
     Dosage: 300 MG TABLET?FORM STRENGTH: 300 MG
     Route: 048
  11. LORAZEPAM [Concomitant]
     Active Substance: LORAZEPAM
     Indication: Product used for unknown indication
     Dosage: TIME INTERVAL: AS NECESSARY: 1 TABLET BY MOUTH AS NEEDED?FORM STRENGTH: 1 MG
     Route: 048
  12. ACALABRUTINIB [Concomitant]
     Active Substance: ACALABRUTINIB
     Indication: Product used for unknown indication
     Dosage: 100 MG ORALLY EVERY 12 HOURS. TAKE WITH OR WITHOUT FOOD?FORM STRENGTH: 10 MG
     Route: 048
  13. IBRUTINIB [Concomitant]
     Active Substance: IBRUTINIB
     Indication: Product used for unknown indication
     Dosage: 420 MG ORALLY EVERY DAY. TAKE WHOLE WITH WATER AT APPROXIMATELY THE SAME TIME EACH DAY?FORM STREN...
     Route: 048

REACTIONS (1)
  - Death [Fatal]

NARRATIVE: CASE EVENT DATE: 20231013
